FAERS Safety Report 4932671-5 (Version None)
Quarter: 2006Q1

REPORT INFORMATION
  Report Type: 
  Country: None (occurrence: None)
  Receive Date: 20060301
  Receipt Date: 20060220
  Transmission Date: 20060701
  Serious: Yes (Other)
  Sender: FDA-Public Use
  Company Number: CHPA2006US02181

PATIENT
  Age: 5 Year
  Sex: Female
  Weight: 16.3 kg

DRUGS (4)
  1. TRIAMINIC COUGH AND SORE THROAT GRAPE FLAVOR (NCH)(ACETAMINOPHEN (PARA [Suspect]
     Indication: COUGH
     Dosage: SEE IMAGE
     Route: 048
     Dates: start: 20041001, end: 20041001
  2. TRIAMINIC COUGH AND SORE THROAT GRAPE FLAVOR (NCH)(ACETAMINOPHEN (PARA [Suspect]
     Indication: COUGH
     Dosage: SEE IMAGE
     Route: 048
     Dates: start: 20060211
  3. FLINTSTONES MULTIPLE VITAMINS (VITAMINS NOS) [Concomitant]
  4. CALCIUM (CALCIUM) [Concomitant]

REACTIONS (1)
  - CONVULSION [None]
